FAERS Safety Report 22021874 (Version 1)
Quarter: 2023Q1

REPORT INFORMATION
  Report Type: Spontaneous
  Country: US (occurrence: None)
  Receive Date: 20230222
  Receipt Date: 20230222
  Transmission Date: 20230418
  Serious: No
  Sender: FDA-Public Use
  Company Number: 2023A031369

PATIENT
  Sex: Female

DRUGS (1)
  1. BRILINTA [Suspect]
     Active Substance: TICAGRELOR
     Route: 048

REACTIONS (6)
  - Dyspnoea [Unknown]
  - Rectal haemorrhage [Unknown]
  - Hypertension [Unknown]
  - Pain [Unknown]
  - Arthritis [Unknown]
  - Blood cholesterol increased [Unknown]
